FAERS Safety Report 8943246 (Version 1)
Quarter: 2012Q4

REPORT INFORMATION
  Report Type: Report from Study
  Country: CA (occurrence: CA)
  Receive Date: 20121204
  Receipt Date: 20121204
  Transmission Date: 20130627
  Serious: Yes (Death, Hospitalization)
  Sender: FDA-Public Use
  Company Number: CA-009507513-1211CAN012678

PATIENT
  Age: 69 Year
  Sex: Male
  Weight: 90.9 kg

DRUGS (8)
  1. TEMOZOLOMIDE [Suspect]
     Indication: GLIOBLASTOMA
     Dosage: UNK, qd
     Route: 048
     Dates: start: 20100623, end: 20100826
  2. BEVACIZUMAB [Suspect]
     Indication: GLIOBLASTOMA
     Dosage: 937 mg, biw
     Route: 042
     Dates: start: 20100623, end: 20100826
  3. SEPTRA DS [Concomitant]
     Dosage: UNK, tiw
     Dates: start: 20100806, end: 20100826
  4. DEXAMETHASONE [Concomitant]
     Dosage: 12 mg, qd
     Dates: start: 20100827
  5. TINZAPARIN SODIUM [Concomitant]
     Dosage: 16000 Microgram, UNK
     Dates: start: 20100706, end: 20100826
  6. QUETIAPINE FUMARATE [Concomitant]
     Dosage: 25 mg, UNK
     Dates: start: 20100724, end: 20100826
  7. PROCHLORPERAZINE [Concomitant]
     Dosage: UNK, prn
     Dates: start: 20100801, end: 20100826
  8. SENOKOT (SENNA) [Concomitant]
     Dosage: 2 DF, UNK
     Dates: start: 20100824, end: 20100826

REACTIONS (1)
  - Oesophageal candidiasis [Fatal]
